FAERS Safety Report 9854178 (Version 1)
Quarter: 2014Q1

REPORT INFORMATION
  Report Type: Spontaneous
  Country: TW (occurrence: TW)
  Receive Date: 20140130
  Receipt Date: 20140130
  Transmission Date: 20141002
  Serious: Yes (Other)
  Sender: FDA-Public Use
  Company Number: PHHY2014TW008516

PATIENT
  Age: 62 Year
  Sex: Male

DRUGS (8)
  1. BUPROPION [Suspect]
     Dosage: 150 MG, PER DAY
  2. BUPROPION [Interacting]
     Dosage: 300 MG, PER DAY
  3. BUPROPION [Interacting]
     Dosage: 150 MG, PER DAY
  4. RISPERIDONE [Interacting]
     Dosage: 1 MG, PER DAY
  5. RISPERIDONE [Interacting]
     Dosage: 4 MG, PER DAY
  6. LAMOTRIGINE [Concomitant]
     Dosage: 25 MG, PER DAY
  7. LAMOTRIGINE [Concomitant]
     Dosage: 75 MG, PER DAY
  8. QUETIAPINE [Concomitant]
     Dosage: 100 MG, PER DAY

REACTIONS (6)
  - Delirium [Recovered/Resolved]
  - Confusional state [Unknown]
  - Hallucination, visual [Unknown]
  - Disorientation [Recovering/Resolving]
  - Agitation [Unknown]
  - Drug interaction [Unknown]
